FAERS Safety Report 6764912-6 (Version None)
Quarter: 2010Q2

REPORT INFORMATION
  Report Type: 
  Country: None (occurrence: None)
  Receive Date: 20100610
  Receipt Date: 20100601
  Transmission Date: 20101027
  Serious: Yes (Other)
  Sender: FDA-Public Use
  Company Number: US-AMGEN-QUU403350

PATIENT
  Sex: Female
  Weight: 64.9 kg

DRUGS (7)
  1. ENBREL [Suspect]
     Indication: RHEUMATOID ARTHRITIS
     Dates: start: 20050801, end: 20100301
  2. CALCIUM CITRATE [Concomitant]
  3. FOLIC ACID [Concomitant]
  4. METHOTREXATE [Concomitant]
     Route: 048
  5. MULTI-VITAMINS [Concomitant]
  6. OMEPRAZOLE [Concomitant]
  7. VITAMIN C [Concomitant]

REACTIONS (15)
  - ABDOMINAL PAIN [None]
  - ADRENAL DISORDER [None]
  - CATARACT OPERATION [None]
  - CHOLELITHIASIS [None]
  - DIVERTICULUM INTESTINAL [None]
  - HAEMORRHOIDS [None]
  - HEPATIC CYST [None]
  - HIATUS HERNIA [None]
  - HYPOACUSIS [None]
  - MUSCULOSKELETAL STIFFNESS [None]
  - NOCTURIA [None]
  - NON-HODGKIN'S LYMPHOMA [None]
  - RENAL CYST [None]
  - THORACIC VERTEBRAL FRACTURE [None]
  - WRIST DEFORMITY [None]
